FAERS Safety Report 5455033-3 (Version None)
Quarter: 2007Q3

REPORT INFORMATION
  Report Type: 
  Country: None (occurrence: None)
  Receive Date: 20070918
  Receipt Date: 20070910
  Transmission Date: 20080115
  Serious: Yes (Other)
  Sender: FDA-Public Use
  Company Number: PHEH2007US12281

PATIENT
  Age: 50 Year
  Sex: Female

DRUGS (3)
  1. DIOVAN [Suspect]
     Indication: HYPERTENSION
  2. DILTIAZEM [Suspect]
     Indication: HYPERTENSION
     Dosage: 300 MG, UNK
  3. COREG [Suspect]

REACTIONS (2)
  - DIALYSIS [None]
  - RENAL IMPAIRMENT [None]
